FAERS Safety Report 7271423-0 (Version None)
Quarter: 2011Q1

REPORT INFORMATION
  Report Type: 
  Country: None (occurrence: None)
  Receive Date: 20110203
  Receipt Date: 20110118
  Transmission Date: 20110831
  Serious: No
  Sender: FDA-Public Use
  Company Number: US-BIOGENIDEC-2011BI003141

PATIENT
  Sex: Female

DRUGS (2)
  1. AMPYRA [Concomitant]
     Dates: start: 20100901
  2. AVONEX [Suspect]
     Indication: MULTIPLE SCLEROSIS
     Route: 030
     Dates: start: 20030503

REACTIONS (3)
  - DYSSTASIA [None]
  - MOBILITY DECREASED [None]
  - DECREASED ACTIVITY [None]
